FAERS Safety Report 10404416 (Version 1)
Quarter: 2014Q1

REPORT INFORMATION
  Report Type: Spontaneous
  Country: US (occurrence: None)
  Receive Date: 20140306
  Receipt Date: 20140306
  Transmission Date: 20141002
  Serious: Yes (Other)
  Sender: FDA-Public Use
  Company Number: 163-21880-08090235

PATIENT
  Age: 62 Year
  Sex: Female

DRUGS (1)
  1. REVLIMID [Suspect]
     Indication: PLASMACYTOMA
     Dosage: 21 IN 21D
     Route: 048
     Dates: start: 20080828

REACTIONS (4)
  - Eye swelling [None]
  - Swelling [None]
  - Rash [None]
  - Pruritus [None]
